FAERS Safety Report 6413224-9 (Version None)
Quarter: 2009Q4

REPORT INFORMATION
  Report Type: 
  Country: None (occurrence: None)
  Receive Date: 20091022
  Receipt Date: 20091022
  Transmission Date: 20100525
  Serious: Yes (Life-Threatening, Hospitalization, Disabling)
  Sender: FDA-Public Use
  Company Number: None

PATIENT
  Sex: Female
  Weight: 72.5755 kg

DRUGS (1)
  1. WELCHOL [Suspect]
     Indication: BLOOD CHOLESTEROL
     Dosage: 2 2 4 A DAY
     Dates: start: 20090701

REACTIONS (4)
  - ASTHENIA [None]
  - MUSCLE SPASMS [None]
  - RESPIRATORY ARREST [None]
  - RESPIRATORY DISORDER [None]
